FAERS Safety Report 20946285 (Version 1)
Quarter: 2022Q2

REPORT INFORMATION
  Report Type: Spontaneous
  Country: US (occurrence: None)
  Receive Date: 20220610
  Receipt Date: 20220610
  Transmission Date: 20220720
  Serious: Yes (Hospitalization)
  Sender: FDA-Public Use
  Company Number: None

PATIENT
  Sex: Male
  Weight: 57.7 kg

DRUGS (4)
  1. CISPLATIN [Suspect]
     Active Substance: CISPLATIN
  2. IFOSFAMIDE [Suspect]
     Active Substance: IFOSFAMIDE
  3. TAXOL [Concomitant]
     Active Substance: PACLITAXEL
  4. FILGRASTIM [Concomitant]
     Active Substance: FILGRASTIM

REACTIONS (8)
  - Odynophagia [None]
  - Epistaxis [None]
  - Constipation [None]
  - Asthenia [None]
  - Pancytopenia [None]
  - Anaemia [None]
  - Neutropenia [None]
  - Thrombocytopenia [None]

NARRATIVE: CASE EVENT DATE: 20220606
